FAERS Safety Report 6443078-6 (Version None)
Quarter: 2009Q4

REPORT INFORMATION
  Report Type: 
  Country: None (occurrence: None)
  Receive Date: 20091117
  Receipt Date: 20091109
  Transmission Date: 20100525
  Serious: Yes (Hospitalization)
  Sender: FDA-Public Use
  Company Number: PHHO2006DE20987

PATIENT
  Sex: Female
  Weight: 73 kg

DRUGS (4)
  1. ZOLEDRONATE T29581+SOLINJ+BM [Suspect]
     Indication: METASTASES TO BONE
     Dosage: 4 MG, EVERY 3 MONTHS
     Route: 042
     Dates: start: 20060830
  2. FEMARA [Concomitant]
     Indication: BREAST CANCER
     Dosage: 2.5 MG, UNK
     Route: 048
     Dates: start: 20060606
  3. XANEF [Concomitant]
     Indication: HYPERTENSION
     Dosage: UNK
     Dates: start: 20060925
  4. ENALAGAMMA [Concomitant]

REACTIONS (2)
  - DECREASED IMMUNE RESPONSIVENESS [None]
  - FEBRILE INFECTION [None]
